FAERS Safety Report 5122160-X (Version None)
Quarter: 2006Q4

REPORT INFORMATION
  Report Type: 
  Country: None (occurrence: None)
  Receive Date: 20061004
  Receipt Date: 20061004
  Transmission Date: 20070319
  Serious: Yes (Hospitalization)
  Sender: FDA-Public Use
  Company Number: None

PATIENT
  Age: 58 Year
  Sex: Male

DRUGS (2)
  1. ASPIRIN [Suspect]
     Dosage: 325MG PO DAILY
     Route: 048
     Dates: start: 20050601, end: 20060810
  2. CLOPIDOGREL [Suspect]
     Dosage: 75MG PO DAILY
     Route: 048
     Dates: start: 20050627, end: 20060810

REACTIONS (8)
  - ACQUIRED OESOPHAGEAL WEB [None]
  - CONVULSION [None]
  - DUODENITIS [None]
  - FAECES DISCOLOURED [None]
  - HAEMATEMESIS [None]
  - HAEMATOCRIT DECREASED [None]
  - HIATUS HERNIA [None]
  - UPPER GASTROINTESTINAL HAEMORRHAGE [None]
